FAERS Safety Report 25407079 (Version 1)
Quarter: 2025Q2

REPORT INFORMATION
  Report Type: Spontaneous
  Country: US (occurrence: US)
  Receive Date: 20250606
  Receipt Date: 20250606
  Transmission Date: 20250716
  Serious: No
  Sender: IPSEN BIOPHARMACEUTICALS, INC.
  Company Number: US-IPSEN Group, Research and Development-2025-13265

PATIENT
  Sex: Female

DRUGS (2)
  1. DYSPORT [Suspect]
     Active Substance: ABOBOTULINUMTOXINA
     Indication: Skin wrinkling
     Route: 065
     Dates: start: 202409, end: 202409
  2. DYSPORT [Suspect]
     Active Substance: ABOBOTULINUMTOXINA
     Indication: Off label use
     Route: 065
     Dates: start: 20250326, end: 20250326

REACTIONS (4)
  - Off label use [Unknown]
  - Pruritus [Unknown]
  - Muscle spasms [Unknown]
  - Muscle twitching [Unknown]

NARRATIVE: CASE EVENT DATE: 20240901
